FAERS Safety Report 23791975 (Version 4)
Quarter: 2024Q2

REPORT INFORMATION
  Report Type: Spontaneous
  Country: US (occurrence: US)
  Receive Date: 20240429
  Receipt Date: 20240507
  Transmission Date: 20240715
  Serious: Yes (Other)
  Sender: FDA-Public Use
  Company Number: US-SA-SAC20240425000235

PATIENT
  Sex: Male

DRUGS (1)
  1. TOUJEO MAX [Suspect]
     Active Substance: INSULIN GLARGINE
     Indication: Type 1 diabetes mellitus
     Dosage: UNK
     Route: 065

REACTIONS (3)
  - Diabetes mellitus inadequate control [Unknown]
  - Cerebrovascular accident [Unknown]
  - Device issue [Unknown]

NARRATIVE: CASE EVENT DATE: 20240401
